FAERS Safety Report 10094435 (Version 3)
Quarter: 2014Q2

REPORT INFORMATION
  Report Type: Spontaneous
  Country: US (occurrence: US)
  Receive Date: 20140422
  Receipt Date: 20140508
  Transmission Date: 20141212
  Serious: Yes (Other)
  Sender: FDA-Public Use
  Company Number: US-SA-CART-1000074

PATIENT
  Age: 54 Year
  Sex: Male

DRUGS (7)
  1. CARTICEL [Suspect]
     Indication: CARTILAGE INJURY
     Dosage: UNK
     Route: 065
     Dates: start: 200006, end: 200006
  2. IBUPROFEN [Concomitant]
  3. ULTRAM [Concomitant]
  4. LUNESTA [Concomitant]
  5. CYMBALTA [Concomitant]
  6. SIMVASTATIN [Concomitant]
  7. ANTIHYPERTENSIVES [Concomitant]

REACTIONS (4)
  - Joint injury [Unknown]
  - Hand fracture [Unknown]
  - Cartilage injury [Unknown]
  - Cartilage injury [Unknown]
